FAERS Safety Report 15490295 (Version 2)
Quarter: 2018Q4

REPORT INFORMATION
  Report Type: Report from Study
  Country: None (occurrence: BR)
  Receive Date: 20181011
  Receipt Date: 20181121
  Transmission Date: 20190205
  Serious: Yes (Death, Other)
  Sender: FDA-Public Use
  Company Number: BR-ABBVIE-18K-020-2514454-00

PATIENT
  Age: 57 Year
  Sex: Female

DRUGS (1)
  1. HUMIRA [Suspect]
     Active Substance: ADALIMUMAB
     Indication: ANKYLOSING SPONDYLITIS
     Route: 058
     Dates: start: 20180204, end: 2018

REACTIONS (4)
  - Pneumonia [Unknown]
  - Death [Fatal]
  - Immunodeficiency [Unknown]
  - Infection [Unknown]

NARRATIVE: CASE EVENT DATE: 201807
